FAERS Safety Report 19328247 (Version 2)
Quarter: 2021Q2

REPORT INFORMATION
  Report Type: Report from Study
  Country: MX (occurrence: MX)
  Receive Date: 20210528
  Receipt Date: 20210604
  Transmission Date: 20210717
  Serious: Yes (Death)
  Sender: FDA-Public Use
  Company Number: MX-BAYER-2021-101458

PATIENT
  Age: 64 Year
  Sex: Female

DRUGS (2)
  1. ADEMPAS [Suspect]
     Active Substance: RIOCIGUAT
     Indication: PULMONARY HYPERTENSION
     Dosage: 2 MG, Q8HR
     Route: 048
     Dates: start: 20210122
  2. ADEMPAS [Suspect]
     Active Substance: RIOCIGUAT
     Indication: PULMONARY HYPERTENSION
     Dosage: 2.5 MG, Q8HR
     Route: 048
     Dates: start: 20020522

REACTIONS (3)
  - Secondary hypertension [Fatal]
  - Scleroderma [Fatal]
  - Blood pressure decreased [None]

NARRATIVE: CASE EVENT DATE: 20210304
